FAERS Safety Report 14482169 (Version 6)
Quarter: 2019Q1

REPORT INFORMATION
  Report Type: Report from Study
  Country: US (occurrence: US)
  Receive Date: 20180202
  Receipt Date: 20190327
  Transmission Date: 20190417
  Serious: Yes (Hospitalization)
  Sender: FDA-Public Use
  Company Number: US-ACTELION-A-US2017-151878

PATIENT
  Age: 74 Year
  Sex: Female
  Weight: 93.42 kg

DRUGS (5)
  1. REMODULIN [Concomitant]
     Active Substance: TREPROSTINIL
  2. FISH OIL [Concomitant]
     Active Substance: FISH OIL
  3. OPSUMIT [Suspect]
     Active Substance: MACITENTAN
     Indication: PULMONARY ARTERIAL HYPERTENSION
     Dosage: 10 MG,QD
     Route: 048
  4. XARELTO [Concomitant]
     Active Substance: RIVAROXABAN
  5. ADCIRCA [Concomitant]
     Active Substance: TADALAFIL

REACTIONS (11)
  - Hospitalisation [Unknown]
  - Upper respiratory tract infection [Unknown]
  - Hypersensitivity [Unknown]
  - Sinusitis [Unknown]
  - Pulmonary arterial pressure increased [Unknown]
  - Dyspnoea [Unknown]
  - Sepsis [Unknown]
  - Concomitant disease aggravated [Unknown]
  - Ear infection [Unknown]
  - Paraesthesia [Unknown]
  - Asthenia [Unknown]

NARRATIVE: CASE EVENT DATE: 2018
